FAERS Safety Report 8161083-9 (Version None)
Quarter: 2012Q1

REPORT INFORMATION
  Report Type: 
  Country: None (occurrence: None)
  Receive Date: 20120224
  Receipt Date: 20120220
  Transmission Date: 20120608
  Serious: No
  Sender: FDA-Public Use
  Company Number: US-PFIZER INC-2012044749

PATIENT
  Sex: Male

DRUGS (3)
  1. OXYBUTYNIN [Concomitant]
     Dosage: UNK
  2. DETROL [Suspect]
     Dosage: UNK
  3. TOVIAZ [Suspect]
     Indication: MICTURITION DISORDER
     Dosage: 8 MG, UNK
     Dates: start: 20120219

REACTIONS (3)
  - POLLAKIURIA [None]
  - DRUG INEFFECTIVE [None]
  - DRY MOUTH [None]
